FAERS Safety Report 8369569-9 (Version None)
Quarter: 2012Q2

REPORT INFORMATION
  Report Type: 
  Country: None (occurrence: None)
  Receive Date: 20120517
  Receipt Date: 20120517
  Transmission Date: 20120825
  Serious: Yes (Other)
  Sender: FDA-Public Use
  Company Number: None

PATIENT
  Age: 50 Year
  Sex: Female
  Weight: 54.4316 kg

DRUGS (2)
  1. AVELOX [Suspect]
     Indication: PNEUMONIA
     Dosage: 1 10 DAYS PO
     Route: 048
     Dates: start: 20120202, end: 20120207
  2. SUPPLEMENTS [Concomitant]

REACTIONS (8)
  - NIGHTMARE [None]
  - INSOMNIA [None]
  - DEPERSONALISATION [None]
  - JOINT CREPITATION [None]
  - ARTHRALGIA [None]
  - AMNESIA [None]
  - COGNITIVE DISORDER [None]
  - FATIGUE [None]
